FAERS Safety Report 5792736-5 (Version None)
Quarter: 2008Q2

REPORT INFORMATION
  Report Type: 
  Country: None (occurrence: None)
  Receive Date: 20080624
  Receipt Date: 20080610
  Transmission Date: 20081010
  Serious: Yes (Hospitalization, Other)
  Sender: FDA-Public Use
  Company Number: 2008AL005302

PATIENT
  Age: 73 Year
  Sex: Female
  Weight: 106.5953 kg

DRUGS (4)
  1. DIGOXIN [Suspect]
     Indication: ATRIAL FIBRILLATION
     Dosage: 0.125 MG,DAILY,PO
     Route: 048
     Dates: start: 20080126
  2. LEVOTHYROXINE SODIUM [Concomitant]
  3. GABAPENTIN [Concomitant]
  4. BUMEX [Concomitant]

REACTIONS (7)
  - ASTHENIA [None]
  - BLOOD PRESSURE DECREASED [None]
  - CARDIAC FAILURE [None]
  - DRUG TOXICITY [None]
  - ILL-DEFINED DISORDER [None]
  - RENAL FAILURE [None]
  - SHOCK [None]
